FAERS Safety Report 6039082-2 (Version None)
Quarter: 2009Q1

REPORT INFORMATION
  Report Type: 
  Country: None (occurrence: None)
  Receive Date: 20090115
  Receipt Date: 20090108
  Transmission Date: 20090719
  Serious: Yes (Death, Life-Threatening, Hospitalization, Other)
  Sender: FDA-Public Use
  Company Number: US-PFIZER INC-2009153568

PATIENT
  Sex: Male
  Weight: 86 kg

DRUGS (8)
  1. AMLODIPINE BESILATE, ATORVASTATIN CALCIUM [Suspect]
  2. LISINOPRIL [Concomitant]
     Dosage: UNK
     Dates: start: 20060411
  3. METOPROLOL [Concomitant]
     Dosage: UNK
     Dates: start: 20060412
  4. TOLAZAMIDE [Concomitant]
     Dosage: UNK
     Dates: start: 20060411
  5. ALBUTEROL [Concomitant]
     Dosage: UNK
  6. ACETYLSALICYLIC ACID [Concomitant]
     Dosage: UNK
  7. LOVASTATIN [Concomitant]
     Dosage: UNK
     Dates: start: 20060912
  8. NIACIN [Concomitant]
     Dosage: UNK

REACTIONS (1)
  - LUNG NEOPLASM MALIGNANT [None]
